FAERS Safety Report 23197877 (Version 1)
Quarter: 2023Q4

REPORT INFORMATION
  Report Type: Spontaneous
  Country: IT (occurrence: IT)
  Receive Date: 20231117
  Receipt Date: 20231117
  Transmission Date: 20240110
  Serious: Yes (Other)
  Sender: FDA-Public Use
  Company Number: IT-AMGEN-ITASP2023200842

PATIENT

DRUGS (5)
  1. ADALIMUMAB [Suspect]
     Active Substance: ADALIMUMAB\ISOPROPYL ALCOHOL
     Indication: Psoriatic arthropathy
     Dosage: UNK
     Route: 065
  2. UPADACITINIB [Suspect]
     Active Substance: UPADACITINIB
     Indication: Psoriatic arthropathy
     Dosage: 15 MILLIGRAM, QD
     Route: 065
  3. METHOTREXATE [Concomitant]
     Active Substance: METHOTREXATE
     Indication: Psoriatic arthropathy
  4. SULFASALAZINE [Concomitant]
     Active Substance: SULFASALAZINE
     Indication: Psoriatic arthropathy
  5. LEFLUNOMIDE [Concomitant]
     Active Substance: LEFLUNOMIDE
     Indication: Psoriatic arthropathy

REACTIONS (14)
  - Thrombocytopenia [Unknown]
  - Neutropenia [Unknown]
  - Treatment failure [Unknown]
  - Herpes simplex reactivation [Unknown]
  - Hypotension [Unknown]
  - Diarrhoea [Unknown]
  - COVID-19 [Unknown]
  - Dyspepsia [Unknown]
  - Blood creatine phosphokinase increased [Unknown]
  - Urinary tract infection [Unknown]
  - Sinusitis [Unknown]
  - Nausea [Unknown]
  - Hepatic enzyme increased [Unknown]
  - Hypertension [Unknown]
